FAERS Safety Report 5728257-5 (Version None)
Quarter: 2008Q2

REPORT INFORMATION
  Report Type: 
  Country: None (occurrence: None)
  Receive Date: 20080506
  Receipt Date: 20080430
  Transmission Date: 20081010
  Serious: Yes (Hospitalization)
  Sender: FDA-Public Use
  Company Number: US-JNJFOC-20080500070

PATIENT
  Sex: Male
  Weight: 87.5 kg

DRUGS (12)
  1. RISPERIDONE [Suspect]
  2. RISPERIDONE [Suspect]
  3. RISPERIDONE [Suspect]
     Indication: SCHIZOPHRENIA
  4. BIFEPRUNOX [Suspect]
     Route: 048
  5. BIFEPRUNOX [Suspect]
     Route: 048
  6. BIFEPRUNOX [Suspect]
     Route: 048
  7. BIFEPRUNOX [Suspect]
     Route: 048
  8. BIFEPRUNOX [Suspect]
     Route: 048
  9. BIFEPRUNOX [Suspect]
     Route: 048
  10. BIFEPRUNOX [Suspect]
     Route: 048
  11. BIFEPRUNOX [Suspect]
     Indication: SCHIZOPHRENIA
     Route: 048
  12. ATIVAN [Concomitant]
     Indication: DRUG USE FOR UNKNOWN INDICATION

REACTIONS (5)
  - ALCOHOL USE [None]
  - DEPRESSION [None]
  - HALLUCINATION, AUDITORY [None]
  - PSYCHOTIC DISORDER [None]
  - SUICIDAL IDEATION [None]
